FAERS Safety Report 10327261 (Version 1)
Quarter: 2014Q3

REPORT INFORMATION
  Report Type: Report from Study
  Country: GB (occurrence: GB)
  Receive Date: 20140720
  Receipt Date: 20140720
  Transmission Date: 20150326
  Serious: Yes (Death)
  Sender: FDA-Public Use
  Company Number: GB-ROCHE-1437465

PATIENT
  Age: 52 Year
  Sex: Male

DRUGS (9)
  1. GLUCOSE [Concomitant]
     Active Substance: DEXTROSE
     Dosage: 5%
     Route: 042
     Dates: end: 20130610
  2. LOPERAMIDE [Concomitant]
     Active Substance: LOPERAMIDE
     Route: 048
     Dates: end: 20130610
  3. ONDANSETRON [Concomitant]
     Active Substance: ONDANSETRON
     Route: 048
     Dates: end: 20130610
  4. DOMPERIDONE [Concomitant]
     Active Substance: DOMPERIDONE
     Route: 048
     Dates: end: 20130610
  5. CAPECITABINE [Suspect]
     Active Substance: CAPECITABINE
     Indication: OESOPHAGEAL CARCINOMA
     Route: 048
     Dates: end: 20130610
  6. DEXAMETHASONE. [Concomitant]
     Active Substance: DEXAMETHASONE
     Route: 048
     Dates: end: 20130610
  7. OXALIPLATIN. [Concomitant]
     Active Substance: OXALIPLATIN
     Route: 042
     Dates: end: 20130610
  8. DEXAMETHASONE. [Concomitant]
     Active Substance: DEXAMETHASONE
     Route: 048
     Dates: end: 20130610
  9. SODIUM CHLORIDE. [Concomitant]
     Active Substance: SODIUM CHLORIDE
     Dosage: 0.9%
     Route: 042
     Dates: end: 20130610

REACTIONS (1)
  - Death [Fatal]
